FAERS Safety Report 6726052-1 (Version None)
Quarter: 2010Q2

REPORT INFORMATION
  Report Type: 
  Country: None (occurrence: None)
  Receive Date: 20100514
  Receipt Date: 20100511
  Transmission Date: 20101027
  Serious: Yes (Death, Other)
  Sender: FDA-Public Use
  Company Number: US-MERCK-1004USA04609

PATIENT
  Age: 59 Year
  Sex: Female

DRUGS (16)
  1. SINGULAIR [Suspect]
     Route: 048
  2. CELEXA [Concomitant]
     Route: 065
  3. ORAMORPH SR [Concomitant]
     Route: 065
  4. PREDNISONE [Concomitant]
     Route: 065
  5. ESTRADIOL [Concomitant]
     Route: 065
  6. HYDROMORPHONE [Concomitant]
     Route: 065
  7. RANITIDINE [Concomitant]
     Route: 065
  8. PROCHLORPERAZINE [Concomitant]
     Route: 065
  9. VERAPAMIL [Concomitant]
     Route: 065
  10. ELAVIL [Concomitant]
     Route: 048
  11. SPIRIVA [Concomitant]
     Route: 065
  12. ADVAIR DISKUS 100/50 [Concomitant]
     Route: 065
  13. ALBUTEROL [Concomitant]
     Route: 065
  14. PRAVASTATIN SODIUM [Concomitant]
     Route: 065
  15. METFORMIN [Concomitant]
     Route: 065
  16. OXYGEN [Concomitant]
     Dosage: 4 L/MIN
     Route: 065

REACTIONS (4)
  - CHRONIC OBSTRUCTIVE PULMONARY DISEASE [None]
  - HYPERLIPIDAEMIA [None]
  - HYPERTENSION [None]
  - NON-SMALL CELL LUNG CANCER [None]
